FAERS Safety Report 7563589-X (Version None)
Quarter: 2011Q2

REPORT INFORMATION
  Report Type: 
  Country: None (occurrence: None)
  Receive Date: 20110622
  Receipt Date: 20110620
  Transmission Date: 20111010
  Serious: Yes (Other)
  Sender: FDA-Public Use
  Company Number: US-PFIZER INC-2011136525

PATIENT
  Sex: Female

DRUGS (4)
  1. LIPITOR [Suspect]
     Indication: SENSATION OF HEAVINESS
     Dosage: 40 MG, DAILY
     Route: 048
     Dates: end: 20110501
  2. ATENOLOL [Concomitant]
     Indication: BLOOD PRESSURE ABNORMAL
     Dosage: UNK
  3. LIPITOR [Suspect]
     Indication: GAIT DISTURBANCE
     Dosage: CUTTING THE TABLETS IN TO TWO
     Route: 048
     Dates: end: 20110601
  4. VALSARTAN [Concomitant]
     Indication: BLOOD PRESSURE ABNORMAL
     Dosage: UNK
     Route: 048

REACTIONS (2)
  - GAIT DISTURBANCE [None]
  - LIMB DISCOMFORT [None]
